FAERS Safety Report 16010301 (Version 4)
Quarter: 2022Q2

REPORT INFORMATION
  Report Type: Other
  Country: CA (occurrence: CA)
  Receive Date: 20190227
  Receipt Date: 20220509
  Transmission Date: 20220721
  Serious: Yes (Life-Threatening, Hospitalization, Other)
  Sender: FDA-Public Use
  Company Number: CA-002147023-PHHY2019CA039766

PATIENT
  Age: 57 Year
  Sex: Male

DRUGS (7)
  1. XOLAIR [Suspect]
     Active Substance: OMALIZUMAB
     Indication: Asthma
     Route: 058
     Dates: start: 20130110
  2. XOLAIR [Suspect]
     Active Substance: OMALIZUMAB
     Route: 058
     Dates: start: 20181111
  3. XOLAIR [Suspect]
     Active Substance: OMALIZUMAB
     Route: 058
     Dates: start: 20170829
  4. XOLAIR [Suspect]
     Active Substance: OMALIZUMAB
     Route: 058
  5. ZENHALE [Concomitant]
     Active Substance: FORMOTEROL FUMARATE\MOMETASONE FUROATE
     Indication: Product used for unknown indication
     Route: 065
  6. TAMSULOSIN [Concomitant]
     Active Substance: TAMSULOSIN
     Indication: Product used for unknown indication
     Dosage: 0.4 MG, QD
     Route: 065
  7. CALCIUM\VITAMIN D [Concomitant]
     Active Substance: CALCIUM\VITAMIN D
     Indication: Product used for unknown indication
     Route: 065

REACTIONS (29)
  - Depression [Recovering/Resolving]
  - Suicidal ideation [Recovered/Resolved]
  - Chest injury [Unknown]
  - Blindness transient [Unknown]
  - Vision blurred [Unknown]
  - Alcoholism [Recovering/Resolving]
  - Asthma [Recovering/Resolving]
  - Wheezing [Not Recovered/Not Resolved]
  - Cough [Unknown]
  - Therapeutic response decreased [Unknown]
  - Dyspnoea [Unknown]
  - Discomfort [Unknown]
  - Chest discomfort [Unknown]
  - Malaise [Recovering/Resolving]
  - General physical health deterioration [Unknown]
  - Temperature intolerance [Unknown]
  - Chest pain [Unknown]
  - Terminal insomnia [Not Recovered/Not Resolved]
  - Rhinorrhoea [Unknown]
  - Rhonchi [Unknown]
  - Seborrhoeic dermatitis [Unknown]
  - FEV1/FVC ratio decreased [Unknown]
  - Forced expiratory volume decreased [Unknown]
  - Smoke sensitivity [Unknown]
  - Mite allergy [Unknown]
  - Nasal congestion [Unknown]
  - Productive cough [Unknown]
  - Road traffic accident [Unknown]
  - Weight increased [Unknown]

NARRATIVE: CASE EVENT DATE: 20140101
